FAERS Safety Report 5471862-4 (Version None)
Quarter: 2007Q3

REPORT INFORMATION
  Report Type: 
  Country: None (occurrence: None)
  Receive Date: 20070928
  Receipt Date: 20070710
  Transmission Date: 20080115
  Serious: No
  Sender: FDA-Public Use
  Company Number: US-BRISTOL-MYERS SQUIBB COMPANY-13841093

PATIENT
  Sex: Female
  Weight: 84 kg

DRUGS (8)
  1. DEFINITY [Suspect]
  2. FUROSEMIDE [Concomitant]
  3. TOPROL-XL [Concomitant]
  4. MAGNESIUM SULFATE [Concomitant]
  5. DETROL [Concomitant]
  6. FISH OIL [Concomitant]
  7. ASPIRIN [Concomitant]
  8. TYLENOL (CAPLET) [Concomitant]

REACTIONS (1)
  - DYSGEUSIA [None]
